FAERS Safety Report 17206341 (Version 3)
Quarter: 2021Q4

REPORT INFORMATION
  Report Type: Spontaneous
  Country: CA (occurrence: CA)
  Receive Date: 20191227
  Receipt Date: 20211110
  Transmission Date: 20220303
  Serious: Yes (Hospitalization, Other)
  Sender: FDA-Public Use
  Company Number: CA-AUROBINDO-AUR-APL-2018-025763

PATIENT
  Age: 70 Year
  Sex: Female

DRUGS (16)
  1. ENTACAPONE [Suspect]
     Active Substance: ENTACAPONE
     Indication: Psychotic disorder
     Dosage: 1000 MILLIGRAM, ONCE A DAY
     Route: 065
  2. ENTACAPONE [Suspect]
     Active Substance: ENTACAPONE
     Indication: Parkinson^s disease
     Dosage: 1000 MILLIGRAM
     Route: 065
  3. PRAMIPEXOLE [Suspect]
     Active Substance: PRAMIPEXOLE
     Indication: Parkinson^s disease
     Dosage: 4.5 MILLIGRAM, ONCE A DAY
     Route: 065
  4. PRAMIPEXOLE [Suspect]
     Active Substance: PRAMIPEXOLE
     Dosage: DOSE DECREASED .75MG FROM 1.5MG
     Route: 065
  5. PRAMIPEXOLE [Suspect]
     Active Substance: PRAMIPEXOLE
     Dosage: 12.5 MILLIGRAM, ONCE A DAY
     Route: 065
  6. QUETIAPINE [Suspect]
     Active Substance: QUETIAPINE
     Indication: Parkinsonism
     Dosage: 12.5 MILLIGRAM, DAILY (UNKNOWN DOSE AT BEDTIME)
     Route: 065
  7. QUETIAPINE [Suspect]
     Active Substance: QUETIAPINE
     Indication: Psychotic disorder
  8. CLOZAPINE [Suspect]
     Active Substance: CLOZAPINE
     Indication: Parkinsonism
     Dosage: 37.5 MILLIGRAM, ONCE A DAY
     Route: 065
  9. CLOZAPINE [Suspect]
     Active Substance: CLOZAPINE
     Indication: Psychotic disorder
  10. AMANTADINE [Suspect]
     Active Substance: AMANTADINE
     Indication: Parkinsonism
     Dosage: 300 MILLIGRAM, ONCE A DAY
     Route: 065
  11. AMANTADINE [Suspect]
     Active Substance: AMANTADINE
     Indication: Psychotic disorder
  12. FLORINEF ACETATE [Suspect]
     Active Substance: FLUDROCORTISONE ACETATE
     Indication: Psychotic disorder
     Dosage: 0.1 MILLIGRAM, ONCE A DAY
     Route: 065
  13. NABILONE [Suspect]
     Active Substance: NABILONE
     Indication: Parkinsonism
     Dosage: `1 MILLIGRAM, TWO TIMES A DAY
     Route: 048
  14. NABILONE [Suspect]
     Active Substance: NABILONE
     Indication: Parkinson^s disease
  15. CARBIDOPA\LEVODOPA [Suspect]
     Active Substance: CARBIDOPA\LEVODOPA
     Indication: Acute psychosis
     Dosage: 1000/250, ONCE A DAY
     Route: 065
  16. CARBIDOPA\LEVODOPA [Suspect]
     Active Substance: CARBIDOPA\LEVODOPA
     Indication: Parkinson^s disease

REACTIONS (12)
  - Psychotic disorder [Recovered/Resolved]
  - Hallucination, visual [Not Recovered/Not Resolved]
  - Orthostatic hypotension [Recovered/Resolved]
  - Paranoia [Recovered/Resolved]
  - Delusion [Recovered/Resolved]
  - Agitation [Recovered/Resolved]
  - Speech disorder [Recovered/Resolved]
  - Dyskinesia [Recovered/Resolved]
  - Dystonia [Recovered/Resolved]
  - Parkinson^s disease psychosis [Recovering/Resolving]
  - Therapeutic response shortened [Recovering/Resolving]
  - Therapeutic product effect incomplete [Recovering/Resolving]
